FAERS Safety Report 8854735 (Version 2)
Quarter: 2012Q4

REPORT INFORMATION
  Report Type: 
  Country: US (occurrence: US)
  Receive Date: 20121023
  Receipt Date: 20121108
  Transmission Date: 20130627
  Serious: Yes (Other)
  Sender: FDA-Public Use
  Company Number: US-INCYTE CORPORATION-2012IN001640

PATIENT
  Age: 59 Year
  Sex: Male
  Weight: 90.7 kg

DRUGS (3)
  1. JAKAFI [Suspect]
     Indication: MYELOFIBROSIS
     Dosage: 25 mg, bid
     Route: 048
     Dates: start: 20111216, end: 20120814
  2. JAKAFI [Suspect]
     Dosage: 10 mg, bid
     Dates: start: 2012, end: 20120916
  3. HYDREA [Concomitant]

REACTIONS (1)
  - Splenomegaly [Unknown]
